FAERS Safety Report 13325345 (Version 16)
Quarter: 2020Q1

REPORT INFORMATION
  Report Type: Spontaneous
  Country: US (occurrence: US)
  Receive Date: 20170310
  Receipt Date: 20200317
  Transmission Date: 20200409
  Serious: Yes (Other)
  Sender: FDA-Public Use
  Company Number: US-PFIZER INC-2017095285

PATIENT
  Age: 86 Year
  Sex: Female
  Weight: 42.64 kg

DRUGS (6)
  1. XALATAN [Suspect]
     Active Substance: LATANOPROST
     Indication: ANGLE CLOSURE GLAUCOMA
     Dosage: UNK
     Route: 047
     Dates: start: 2016
  2. XALATAN [Suspect]
     Active Substance: LATANOPROST
     Dosage: UNK
     Route: 047
  3. XALATAN [Suspect]
     Active Substance: LATANOPROST
     Dosage: 1 DROP BOTH EYES AT BEDTIME
     Route: 047
     Dates: start: 201705
  4. XALATAN [Suspect]
     Active Substance: LATANOPROST
     Dosage: 2 GTT, DAILY [ONE GTT OU DAILY]
     Route: 061
  5. XALATAN [Suspect]
     Active Substance: LATANOPROST
     Dosage: 2 GTT, DAILY [ONE DROP DAILY IN EACH EYE]
     Route: 047
     Dates: start: 2018
  6. XALATAN [Suspect]
     Active Substance: LATANOPROST
     Dosage: UNK
     Route: 047

REACTIONS (31)
  - Intraocular pressure increased [Not Recovered/Not Resolved]
  - Glaucoma [Not Recovered/Not Resolved]
  - Product storage error [Unknown]
  - Anxiety disorder [Unknown]
  - Eye pain [Not Recovered/Not Resolved]
  - Chest pain [Not Recovered/Not Resolved]
  - Epistaxis [Unknown]
  - Product use in unapproved indication [Unknown]
  - Product label issue [Unknown]
  - Atrial fibrillation [Unknown]
  - Exfoliation glaucoma [Unknown]
  - Pain [Unknown]
  - Nasal discomfort [Unknown]
  - Macular degeneration [Not Recovered/Not Resolved]
  - Upper respiratory tract infection [Recovered/Resolved]
  - Oropharyngeal pain [Unknown]
  - Productive cough [Unknown]
  - Visual impairment [Unknown]
  - Arthralgia [Not Recovered/Not Resolved]
  - Influenza [Recovered/Resolved]
  - Eye irritation [Recovered/Resolved]
  - Fatigue [Unknown]
  - Ocular hyperaemia [Unknown]
  - Nasal inflammation [Unknown]
  - Eye pruritus [Unknown]
  - Laryngitis [Unknown]
  - White blood cell count decreased [Unknown]
  - Product dose omission [Not Recovered/Not Resolved]
  - Malaise [Unknown]
  - Nasopharyngitis [Unknown]
  - Off label use [Unknown]

NARRATIVE: CASE EVENT DATE: 20170627
